FAERS Safety Report 10458760 (Version 1)
Quarter: 2014Q3

REPORT INFORMATION
  Report Type: Report from Study
  Country: TR (occurrence: TR)
  Receive Date: 20140917
  Receipt Date: 20140917
  Transmission Date: 20150326
  Serious: Yes (Death, Hospitalization)
  Sender: FDA-Public Use
  Company Number: TR-US-EMD SERONO, INC.-7320602

PATIENT
  Sex: Male

DRUGS (3)
  1. PAROL [Concomitant]
     Active Substance: ACETAMINOPHEN
     Indication: ANALGESIC THERAPY
  2. PAROL [Concomitant]
     Active Substance: ACETAMINOPHEN
     Indication: PYREXIA
  3. REBIF [Suspect]
     Active Substance: INTERFERON BETA-1A
     Indication: MULTIPLE SCLEROSIS
     Dates: start: 20130129, end: 201406

REACTIONS (3)
  - Lung neoplasm malignant [Unknown]
  - Multiple sclerosis relapse [Unknown]
  - Death [Fatal]

NARRATIVE: CASE EVENT DATE: 201406
